FAERS Safety Report 5573042-0 (Version None)
Quarter: 2007Q4

REPORT INFORMATION
  Report Type: 
  Country: None (occurrence: None)
  Receive Date: 20071224
  Receipt Date: 20071214
  Transmission Date: 20080405
  Serious: Yes (Other)
  Sender: FDA-Public Use
  Company Number: DK-ROCHE-530154

PATIENT
  Age: 68 Year
  Sex: Female
  Weight: 60 kg

DRUGS (15)
  1. BONIVA [Suspect]
     Indication: OSTEOPOROSIS
     Dosage: FORM REPORTED AS ^FILM COATED T^.
     Route: 048
     Dates: start: 20070601, end: 20070822
  2. FOSAMAX [Suspect]
     Indication: OSTEOPOROSIS
     Route: 065
     Dates: start: 20070901
  3. FOSAMAX [Suspect]
     Route: 065
     Dates: start: 20070901
  4. KETOGAN [Suspect]
     Indication: PAIN
     Route: 048
     Dates: start: 19900101
  5. DURAGESIC-100 [Concomitant]
     Indication: PAIN
     Dosage: STRENGTH: 50 MCG/HOUR. DOSAGE REFIMEN: ONE PATCH EVERY THREE DAY.
     Route: 062
     Dates: start: 20030101
  6. CIPRALEX [Concomitant]
     Indication: DEPRESSION
     Dosage: FORM REPORTED AS ^FILM COATED T^.
     Route: 048
     Dates: start: 20070604
  7. MIRTAZAPINE [Concomitant]
     Indication: DEPRESSION
     Dates: start: 20050103
  8. BRICANYL [Concomitant]
     Indication: ASTHMA
     Dosage: ROUTE: RESPIRATORY (INHALATION). FORM: NEBULISER. DOSE: 1-3 INHALATIONS PER DAY.
     Route: 055
     Dates: start: 19900101
  9. PULMICORT [Concomitant]
     Dosage: DRUG REPORTED AS PULMOCORT.
     Dates: start: 20020101
  10. DULCOLAX [Concomitant]
     Dosage: FORM REPORTED AS GASTRO-RESITANT TABLET.
     Route: 048
     Dates: start: 20030101
  11. HEXALID [Concomitant]
     Indication: ANXIETY
     Route: 048
     Dates: start: 19900101
  12. NITROFURANTOIN DAK [Concomitant]
     Indication: PROPHYLAXIS URINARY TRACT INFECTION
     Route: 048
     Dates: start: 20041104
  13. PANTOLOC [Concomitant]
     Indication: PROPHYLAXIS AGAINST GASTROINTESTINAL ULCER
     Dosage: FORM: POWDER FOR SOLUTION FOR INJECTION.
     Route: 042
     Dates: start: 20030303
  14. SPIRIVA [Concomitant]
     Dosage: FORM REPORTED AS ^INHALATION POWDER, HARD CAPSULE^.
     Route: 055
     Dates: start: 20060801
  15. UNIKALK [Concomitant]
     Dosage: DRUG REPORTED AS UNIKALK SENIOR/SILVER.
     Dates: start: 20061101

REACTIONS (1)
  - NIGHT SWEATS [None]
